FAERS Safety Report 12605200 (Version 2)
Quarter: 2017Q1

REPORT INFORMATION
  Report Type: Report from Study
  Country: US (occurrence: US)
  Receive Date: 20160729
  Receipt Date: 20170306
  Transmission Date: 20170428
  Serious: Yes (Hospitalization)
  Sender: FDA-Public Use
  Company Number: US-ROCHE-1803499

PATIENT
  Age: 50 Year
  Sex: Female
  Weight: 54.93 kg

DRUGS (4)
  1. CAPECITABINE. [Suspect]
     Active Substance: CAPECITABINE
     Indication: TRIPLE NEGATIVE BREAST CANCER
     Dosage: LAST DOSE PRIOR TO SAE: 07/MAY/2016
     Route: 048
     Dates: start: 20160406, end: 20160507
  2. MORPHINE [Concomitant]
     Active Substance: MORPHINE
     Route: 048
     Dates: start: 20160426
  3. ATROPINE SULFATE/DIPHENOXYLATE HYDROCHLORIDE [Concomitant]
     Active Substance: ATROPINE SULFATE\DIPHENOXYLATE HYDROCHLORIDE
  4. MAGIC MOUTH RINSE (KAOPECTATE, VISCOUS LIDOCAINE, BENADRYL) [Concomitant]
     Route: 048
     Dates: start: 20160405

REACTIONS (6)
  - Diarrhoea [Not Recovered/Not Resolved]
  - Enterocolitis [Not Recovered/Not Resolved]
  - Abdominal pain [Not Recovered/Not Resolved]
  - Pleural effusion [Not Recovered/Not Resolved]
  - Dehydration [Not Recovered/Not Resolved]
  - Vomiting [Not Recovered/Not Resolved]

NARRATIVE: CASE EVENT DATE: 20160505
